FAERS Safety Report 5805970-2 (Version None)
Quarter: 2008Q3

REPORT INFORMATION
  Report Type: 
  Country: None (occurrence: None)
  Receive Date: 20080710
  Receipt Date: 20080701
  Transmission Date: 20090109
  Serious: Yes (Death, Hospitalization, Congenital Anomaly)
  Sender: FDA-Public Use
  Company Number: A0702275A

PATIENT
  Sex: Male
  Weight: 0.4 kg

DRUGS (4)
  1. PAXIL CR [Suspect]
     Indication: ANXIETY
     Dates: start: 20030701, end: 20031201
  2. VITAMIN TAB [Concomitant]
     Indication: PREGNANCY
  3. STEROIDS [Concomitant]
  4. BENADRYL [Concomitant]

REACTIONS (18)
  - ATRIAL SEPTAL DEFECT [None]
  - COARCTATION OF THE AORTA [None]
  - CONVULSION [None]
  - DEVELOPMENTAL DELAY [None]
  - DRUG EXPOSURE DURING PREGNANCY [None]
  - FOETAL GROWTH RETARDATION [None]
  - GENERALISED OEDEMA [None]
  - HYPERBILIRUBINAEMIA [None]
  - INTRAVENTRICULAR HAEMORRHAGE [None]
  - METABOLIC ACIDOSIS [None]
  - MULTI-ORGAN FAILURE [None]
  - PATENT DUCTUS ARTERIOSUS [None]
  - PERSISTENT FOETAL CIRCULATION [None]
  - PREMATURE BABY [None]
  - PULMONARY HAEMORRHAGE [None]
  - RENAL DISORDER [None]
  - RESPIRATORY DISTRESS [None]
  - SEPSIS [None]
